FAERS Safety Report 5660062-0 (Version None)
Quarter: 2008Q1

REPORT INFORMATION
  Report Type: 
  Country: None (occurrence: None)
  Receive Date: 20080311
  Receipt Date: 20070905
  Transmission Date: 20080703
  Serious: No
  Sender: FDA-Public Use
  Company Number: US-BAYER-200712856BCC

PATIENT
  Age: 69 Year
  Sex: Male
  Weight: 68 kg

DRUGS (8)
  1. ALEVE [Suspect]
     Indication: ARTHRITIS
     Dosage: UNIT DOSE: 220 MG
     Route: 048
     Dates: start: 20060101
  2. AZATHIOPRINE [Concomitant]
  3. ZOLOFT [Concomitant]
  4. ASCORBIC ACID [Concomitant]
  5. VITAMIN E [Concomitant]
  6. VITAMIN B6 [Concomitant]
  7. VITAMIN B-12 [Concomitant]
  8. ZINC [Concomitant]

REACTIONS (1)
  - DIARRHOEA [None]
